FAERS Safety Report 8355103-6 (Version None)
Quarter: 2012Q2

REPORT INFORMATION
  Report Type: 
  Country: None (occurrence: None)
  Receive Date: 20120511
  Receipt Date: 20120507
  Transmission Date: 20120825
  Serious: Yes (Other)
  Sender: FDA-Public Use
  Company Number: TR-BAXTER-2012BAX005070

PATIENT

DRUGS (3)
  1. CYCLOPHOSPHAMIDE [Suspect]
  2. BUSULFAN [Suspect]
     Route: 048
  3. FLUDARABINE PHOSPHATE [Suspect]

REACTIONS (1)
  - VENOOCCLUSIVE LIVER DISEASE [None]
